FAERS Safety Report 11556427 (Version 1)
Quarter: 2015Q3

REPORT INFORMATION
  Report Type: Spontaneous
  Country: US (occurrence: US)
  Receive Date: 20150916
  Receipt Date: 20150916
  Transmission Date: 20151125
  Serious: No
  Sender: FDA-Public Use
  Company Number: US-ELI_LILLY_AND_COMPANY-US200805005921

PATIENT
  Age: 83 Year
  Sex: Female

DRUGS (11)
  1. TOPROL XL [Concomitant]
     Active Substance: METOPROLOL SUCCINATE
  2. MULTI-VIT [Concomitant]
     Active Substance: VITAMINS
  3. COUMADIN [Concomitant]
     Active Substance: WARFARIN SODIUM
     Dosage: 4 MG, 4/W
  4. ZOCOR [Concomitant]
     Active Substance: SIMVASTATIN
  5. COUMADIN [Concomitant]
     Active Substance: WARFARIN SODIUM
     Dosage: 2 MG, 3/D
  6. AMIODARONE [Concomitant]
     Active Substance: AMIODARONE
     Dosage: UNK, QOD
  7. FORTEO [Suspect]
     Active Substance: TERIPARATIDE
  8. RAZADYNE [Concomitant]
     Active Substance: GALANTAMINE HYDROBROMIDE
  9. ASA [Concomitant]
     Active Substance: ASPIRIN
     Dosage: 81 MG, UNK
  10. SULAR [Concomitant]
     Active Substance: NISOLDIPINE
  11. CALTRATE [Concomitant]
     Active Substance: CALCIUM CARBONATE

REACTIONS (1)
  - Wrist fracture [Not Recovered/Not Resolved]

NARRATIVE: CASE EVENT DATE: 20080430
